FAERS Safety Report 23972609 (Version 1)
Quarter: 2024Q2

REPORT INFORMATION
  Report Type: Spontaneous
  Country: US (occurrence: None)
  Receive Date: 20240613
  Receipt Date: 20240613
  Transmission Date: 20240715
  Serious: Yes (Hospitalization)
  Sender: FDA-Public Use
  Company Number: None

PATIENT
  Age: 40 Year
  Sex: Female

DRUGS (3)
  1. BENLYSTA [Suspect]
     Active Substance: BELIMUMAB
     Indication: Systemic lupus erythematosus
     Dosage: INFUSE 536 MG INTRAVENOUSLY AT WEEKS 0,2, AND 4, THEN EVERY 4 WEEKS THEREAFTE
     Route: 042
     Dates: start: 202201
  2. BENLYSTA [Suspect]
     Active Substance: BELIMUMAB
  3. BENLYSTA AUTOINJ [Concomitant]

REACTIONS (1)
  - Spinal stroke [None]

NARRATIVE: CASE EVENT DATE: 20240422
